FAERS Safety Report 5220580-6 (Version None)
Quarter: 2007Q1

REPORT INFORMATION
  Report Type: 
  Country: None (occurrence: None)
  Receive Date: 20070125
  Receipt Date: 20070125
  Transmission Date: 20070707
  Serious: Yes (Hospitalization)
  Sender: FDA-Public Use
  Company Number: None

PATIENT
  Sex: Male
  Weight: 104.3273 kg

DRUGS (6)
  1. ITRACONAZOLE [Suspect]
     Indication: FUNGAL INFECTION
     Dosage: 100MG PO BID
     Route: 048
     Dates: start: 20060407
  2. TYLENOL [Concomitant]
  3. TORADOL [Concomitant]
  4. LEVAQUIN [Concomitant]
  5. BACID [Concomitant]
  6. LOTRISONE [Concomitant]

REACTIONS (2)
  - PRURITUS [None]
  - RASH [None]
